FAERS Safety Report 4706078-X (Version None)
Quarter: 2005Q2

REPORT INFORMATION
  Report Type: 
  Country: None (occurrence: None)
  Receive Date: 20050627
  Receipt Date: 20050103
  Transmission Date: 20051028
  Serious: Yes (Other)
  Sender: FDA-Public Use
  Company Number: US-JNJFOC-20040804973

PATIENT
  Age: 75 Year
  Sex: Female
  Weight: 47.6277 kg

DRUGS (20)
  1. FENTANYL [Suspect]
     Indication: PAIN
     Dosage: 25 UG/HR, 1 IN 72 HOUR, TRANSDERMAL
     Route: 062
     Dates: start: 20040409, end: 20040415
  2. FENTANYL [Suspect]
     Indication: PAIN
     Dosage: 25 UG/HR, 1 IN 72 HOUR, TRANSDERMAL
     Route: 062
     Dates: start: 20040416, end: 20040524
  3. FENTANYL [Suspect]
     Indication: PAIN
     Dosage: 25 UG/HR, 1 IN 72 HOUR, TRANSDERMAL
     Route: 062
     Dates: start: 20040527, end: 20040624
  4. FENTANYL [Suspect]
     Indication: PAIN
     Dosage: 25 UG/HR, 1 IN 72 HOUR, TRANSDERMAL
     Route: 062
     Dates: start: 20040624, end: 20040705
  5. FENTANYL [Suspect]
     Indication: PAIN
     Dosage: 25 UG/HR, 1 IN 72 HOUR, TRANSDERMAL
     Route: 062
     Dates: start: 20040706, end: 20040824
  6. FENTANYL [Suspect]
     Indication: PAIN
     Dosage: 25 UG/HR, 1 IN 72 HOUR, TRANSDERMAL
     Route: 062
     Dates: start: 20040824, end: 20040914
  7. . [Concomitant]
  8. . [Concomitant]
  9. . [Concomitant]
  10. . [Concomitant]
  11. . [Concomitant]
  12. POTASSIUM (POTASSIUM) TABLETS [Concomitant]
  13. MAXXINE (DYAZIDE) [Concomitant]
  14. VALIUM [Concomitant]
  15. ATENOLOL [Concomitant]
  16. ZITA (ALL OTHER THERAPEUTIC PRODUCTS) TABLETS [Concomitant]
  17. PLAVIX [Concomitant]
  18. NEUROCREME (ALL OTHER THERAPEUTIC PRODUCTS) [Concomitant]
  19. NEURONTIN [Concomitant]
  20. DILAUDID [Concomitant]

REACTIONS (20)
  - CHEST PAIN [None]
  - CONSTIPATION [None]
  - DRY MOUTH [None]
  - DYSPHAGIA [None]
  - DYSPHONIA [None]
  - DYSPNOEA [None]
  - EATING DISORDER [None]
  - FAECAL OCCULT BLOOD [None]
  - HAEMORRHAGE [None]
  - INSOMNIA [None]
  - LIP DRY [None]
  - LIP HAEMORRHAGE [None]
  - MOUTH HAEMORRHAGE [None]
  - MUSCLE ATROPHY [None]
  - NAUSEA [None]
  - SKIN ULCER [None]
  - SOMNOLENCE [None]
  - THIRST [None]
  - VARICOSE VEIN [None]
  - WEIGHT DECREASED [None]
